FAERS Safety Report 7790545-9 (Version None)
Quarter: 2011Q3

REPORT INFORMATION
  Report Type: 
  Country: None (occurrence: None)
  Receive Date: 20110930
  Receipt Date: 20110928
  Transmission Date: 20111222
  Serious: Yes (Hospitalization)
  Sender: FDA-Public Use
  Company Number: BR-ABBOTT-11P-020-0855519-00

PATIENT
  Sex: Male
  Weight: 110 kg

DRUGS (14)
  1. CELECOXIB [Concomitant]
     Indication: PRODUCT USED FOR UNKNOWN INDICATION
     Route: 048
     Dates: start: 20110301
  2. HUMIRA [Suspect]
     Indication: RHEUMATOID ARTHRITIS
     Route: 058
     Dates: start: 20110804
  3. LOSARTAN POTASSIUM [Concomitant]
     Indication: PRODUCT USED FOR UNKNOWN INDICATION
     Route: 048
     Dates: start: 20110301
  4. NPH INSULIN [Concomitant]
     Indication: DIABETES MELLITUS
     Dosage: IN THE MORNING
     Route: 058
     Dates: start: 20110301
  5. NPH INSULIN [Concomitant]
     Dosage: AT NIGHT
     Route: 058
     Dates: start: 20110301
  6. SIMVASTATIN [Concomitant]
     Indication: PRODUCT USED FOR UNKNOWN INDICATION
     Route: 048
     Dates: start: 20110301
  7. OMEPRAZOLE [Concomitant]
     Indication: PRODUCT USED FOR UNKNOWN INDICATION
     Route: 048
     Dates: start: 20110301
  8. FERROUS CARBONYL (COMBIRON FOLICO) [Concomitant]
     Indication: PRODUCT USED FOR UNKNOWN INDICATION
     Route: 048
     Dates: start: 20110301
  9. HYDROCHLOROTHIAZIDE [Concomitant]
     Indication: PRODUCT USED FOR UNKNOWN INDICATION
     Route: 048
     Dates: start: 20110301
  10. NPH INSULIN [Concomitant]
     Dosage: IN THE AFTERNOON
     Route: 058
     Dates: start: 20110301
  11. HYDROXYCHLOROQUINE SULFATE [Concomitant]
     Indication: PRODUCT USED FOR UNKNOWN INDICATION
     Route: 048
     Dates: start: 20110301
  12. ACETAMINOPHEN [Concomitant]
     Indication: PRODUCT USED FOR UNKNOWN INDICATION
     Route: 048
     Dates: start: 20110301
  13. METHOTREXATE [Concomitant]
     Indication: PRODUCT USED FOR UNKNOWN INDICATION
     Dosage: ON WEDNESDAY
     Route: 048
     Dates: start: 20110301
  14. VITAMIN A + D [Concomitant]
     Indication: PRODUCT USED FOR UNKNOWN INDICATION
     Route: 048
     Dates: start: 20110301

REACTIONS (6)
  - CHEST PAIN [None]
  - OEDEMA PERIPHERAL [None]
  - BOWEL MOVEMENT IRREGULARITY [None]
  - PAIN IN EXTREMITY [None]
  - PYREXIA [None]
  - SOMNOLENCE [None]
